FAERS Safety Report 5794748-4 (Version None)
Quarter: 2008Q2

REPORT INFORMATION
  Report Type: 
  Country: None (occurrence: None)
  Receive Date: 20080630
  Receipt Date: 20080619
  Transmission Date: 20081010
  Serious: Yes (Hospitalization)
  Sender: FDA-Public Use
  Company Number: FR-WYE-H04730608

PATIENT
  Sex: Female

DRUGS (7)
  1. CORDARONE [Suspect]
     Route: 048
     Dates: start: 20080414
  2. AUGMENTIN '125' [Interacting]
     Indication: COUGH
     Route: 048
     Dates: start: 20080507, end: 20080510
  3. BISOPROLOL FUMARATE [Concomitant]
     Route: 048
     Dates: start: 20080424
  4. CYANOCOBALAMIN [Concomitant]
     Indication: ANAEMIA MACROCYTIC
     Route: 048
  5. LASIX [Concomitant]
     Indication: OEDEMA PERIPHERAL
     Route: 048
     Dates: start: 20080414
  6. PREVISCAN [Interacting]
     Route: 048
     Dates: end: 20080501
  7. PERINDOPRIL ERBUMINE [Concomitant]
     Route: 048

REACTIONS (4)
  - ANAEMIA [None]
  - DRUG INTERACTION [None]
  - EPISTAXIS [None]
  - INTERNATIONAL NORMALISED RATIO INCREASED [None]
